FAERS Safety Report 4586712-8 (Version None)
Quarter: 2005Q1

REPORT INFORMATION
  Report Type: 
  Country: None (occurrence: None)
  Receive Date: 20050218
  Receipt Date: 20050207
  Transmission Date: 20050727
  Serious: Yes (Hospitalization)
  Sender: FDA-Public Use
  Company Number: DE-ABBOTT-05P-062-0290023-00

PATIENT
  Age: 63 Year
  Sex: Male

DRUGS (12)
  1. AKINETON [Suspect]
     Indication: DRUG USE FOR UNKNOWN INDICATION
     Route: 048
     Dates: start: 20030201, end: 20030930
  2. FLUPENTIXOL DIHYDROCHLORIDE [Suspect]
     Indication: DRUG USE FOR UNKNOWN INDICATION
     Route: 048
     Dates: start: 20030610
  3. FLUPENTIXOL DIHYDROCHLORIDE [Suspect]
     Route: 048
     Dates: start: 20030301, end: 20030609
  4. LOPONEX [Suspect]
     Indication: DRUG USE FOR UNKNOWN INDICATION
     Route: 048
     Dates: start: 20030919
  5. LOPONEX [Suspect]
     Route: 048
     Dates: start: 20030904, end: 20030906
  6. LOPONEX [Suspect]
     Dosage: 50-175 MG DAILY
     Route: 048
     Dates: start: 20030907, end: 20030918
  7. OLANZAPINE [Suspect]
     Indication: DRUG USE FOR UNKNOWN INDICATION
     Route: 048
     Dates: start: 20030710, end: 20030930
  8. OLANZAPINE [Suspect]
     Route: 048
     Dates: start: 20030620, end: 20030625
  9. OLANZAPINE [Suspect]
     Route: 048
     Dates: start: 20030626, end: 20030703
  10. OLANZAPINE [Suspect]
     Route: 048
     Dates: start: 20030704, end: 20030709
  11. OLANZAPINE [Suspect]
     Route: 048
     Dates: start: 20031001
  12. MELPERONE HYDROCHLORIDE [Concomitant]
     Indication: DRUG USE FOR UNKNOWN INDICATION
     Route: 048
     Dates: start: 20030301

REACTIONS (4)
  - CONSTIPATION [None]
  - FAECALOMA [None]
  - ILEUS [None]
  - SUBILEUS [None]
